FAERS Safety Report 5270450-2 (Version None)
Quarter: 2007Q1

REPORT INFORMATION
  Report Type: 
  Country: None (occurrence: None)
  Receive Date: 20070315
  Receipt Date: 20070305
  Transmission Date: 20070707
  Serious: Yes (Other)
  Sender: FDA-Public Use
  Company Number: 2007310252

PATIENT
  Sex: Female

DRUGS (1)
  1. ROGAINE [Suspect]
     Indication: ALOPECIA
     Dosage: 1 ML TWICE DAILY (1 ML, 2 IN 1 D) TOPICAL
     Route: 061
     Dates: start: 20000101, end: 20000101

REACTIONS (1)
  - BREAST CANCER FEMALE [None]
